FAERS Safety Report 8948744 (Version 1)
Quarter: 2012Q4

REPORT INFORMATION
  Report Type: 
  Country: DE (occurrence: DE)
  Receive Date: 20121206
  Receipt Date: 20121206
  Transmission Date: 20130627
  Serious: Yes (Life-Threatening, Hospitalization, Disabling)
  Sender: FDA-Public Use
  Company Number: DE-ROCHE-1119736

PATIENT
  Age: 15 Year
  Sex: Male
  Weight: 63 kg

DRUGS (10)
  1. ROACTEMRA [Suspect]
     Indication: JUVENILE ARTHRITIS
     Route: 050
     Dates: start: 20120520
  2. PREDNISOLON [Concomitant]
     Route: 065
  3. METHOTREXATE [Concomitant]
     Route: 058
  4. DICLOFENAC [Concomitant]
     Route: 065
  5. PANTOPRAZOL [Concomitant]
     Route: 065
  6. MERONEM [Concomitant]
  7. TEICOPLANIN [Concomitant]
  8. METRONIDAZOL [Concomitant]
  9. AMBISOME [Concomitant]
  10. CEFUROXIM [Concomitant]

REACTIONS (6)
  - Ileal perforation [Recovered/Resolved with Sequelae]
  - Septic shock [Recovered/Resolved]
  - Crohn^s disease [Unknown]
  - Haematochezia [Unknown]
  - Gastrointestinal inflammation [Unknown]
  - Rectal ulcer [Unknown]
